FAERS Safety Report 11849123 (Version 1)
Quarter: 2015Q4

REPORT INFORMATION
  Report Type: Spontaneous
  Country: US (occurrence: None)
  Receive Date: 20151217
  Receipt Date: 20151217
  Transmission Date: 20160305
  Serious: Yes (Other)
  Sender: FDA-Public Use
  Company Number: None

PATIENT
  Age: 68 Year
  Sex: Female
  Weight: 83.92 kg

DRUGS (17)
  1. FISH OIL [Concomitant]
     Active Substance: FISH OIL
  2. IRON [Concomitant]
     Active Substance: IRON
  3. LYSINE [Concomitant]
     Active Substance: LYSINE
  4. METRONIDAZOLE. [Suspect]
     Active Substance: METRONIDAZOLE
     Indication: DIVERTICULITIS
     Route: 048
     Dates: start: 20151015, end: 20151029
  5. SUPER B [Concomitant]
  6. CALCUIM [Concomitant]
  7. COENZYME Q10 [Concomitant]
     Active Substance: UBIDECARENONE
  8. DILYIZEM [Concomitant]
  9. CRANBERRY. [Concomitant]
     Active Substance: CRANBERRY
  10. MAGNESIUM [Concomitant]
     Active Substance: MAGNESIUM
  11. CIPROFLOXACIN 500 MG DR. REDDY^S LAB [Suspect]
     Active Substance: CIPROFLOXACIN
     Indication: ABSCESS
     Route: 048
     Dates: start: 20151015, end: 20151029
  12. ACIDOPHILUS [Concomitant]
     Active Substance: LACTOBACILLUS ACIDOPHILUS
  13. POTASSIUM [Concomitant]
     Active Substance: POTASSIUM
  14. D3 [Concomitant]
     Active Substance: 25-HYDROXYCHOLECALCIFEROL, 5-TRANS-
  15. CIPROFLOXACIN 500 MG DR. REDDY^S LAB [Suspect]
     Active Substance: CIPROFLOXACIN
     Indication: DIVERTICULITIS
     Route: 048
     Dates: start: 20151015, end: 20151029
  16. B6 [Concomitant]
     Active Substance: PYRIDOXINE HYDROCHLORIDE
  17. ADRENAL ESSENTIALS [Concomitant]

REACTIONS (4)
  - Hypertension [None]
  - Pollakiuria [None]
  - Palpitations [None]
  - Dehydration [None]

NARRATIVE: CASE EVENT DATE: 20151015
